FAERS Safety Report 9361585 (Version 2)
Quarter: 2013Q2

REPORT INFORMATION
  Report Type: Report from Study
  Country: AU (occurrence: AU)
  Receive Date: 20130621
  Receipt Date: 20130628
  Transmission Date: 20140414
  Serious: Yes (Hospitalization)
  Sender: FDA-Public Use
  Company Number: PHHY2013AU063605

PATIENT
  Sex: Male

DRUGS (1)
  1. CLOZARIL [Suspect]
     Dosage: 400 MG, UNK
     Dates: start: 19951003

REACTIONS (2)
  - Psychotic disorder [Unknown]
  - Drug ineffective [Unknown]
